FAERS Safety Report 5688848-7 (Version None)
Quarter: 2008Q1

REPORT INFORMATION
  Report Type: 
  Country: None (occurrence: None)
  Receive Date: 20080331
  Receipt Date: 20040607
  Transmission Date: 20080703
  Serious: Yes (Death)
  Sender: FDA-Public Use
  Company Number: FR-ROCHE-370383

PATIENT
  Age: 84 Year
  Sex: Male
  Weight: 70 kg

DRUGS (12)
  1. ROCEPHIN [Suspect]
     Indication: BRONCHOPNEUMOPATHY
     Route: 030
     Dates: start: 20031122, end: 20031122
  2. CORDARONE [Concomitant]
     Indication: DRUG USE FOR UNKNOWN INDICATION
     Route: 065
  3. MEXITIL [Concomitant]
     Indication: DRUG USE FOR UNKNOWN INDICATION
     Route: 065
  4. FOZITEC [Concomitant]
     Indication: DRUG USE FOR UNKNOWN INDICATION
     Dosage: DRUG REPORTED AS FOZITEC 20
     Route: 065
  5. DIFFU K [Concomitant]
     Indication: DRUG USE FOR UNKNOWN INDICATION
     Route: 065
  6. LASILIX 40 [Concomitant]
     Indication: DRUG USE FOR UNKNOWN INDICATION
     Route: 065
  7. TADENAN [Concomitant]
     Indication: DRUG USE FOR UNKNOWN INDICATION
     Route: 065
  8. FORADIL [Concomitant]
     Dosage: ONE ASPIRATION INTHE MORNING AND IN THE EVENING.
     Route: 055
  9. PULMICORT [Concomitant]
     Dosage: ONE ASPIRATION INTHE MORNING AND IN THE EVENING.
     Route: 055
  10. VECTARION [Concomitant]
     Dosage: FOR 2 MONTHS IN 3
  11. EUPHYLLINE [Concomitant]
     Dosage: EUPHYLLINE 300 IN THE MORNING AND IN THE EVENING.
  12. SURBRONC [Concomitant]

REACTIONS (2)
  - CARDIO-RESPIRATORY ARREST [None]
  - MALAISE [None]
